FAERS Safety Report 7276051-9 (Version None)
Quarter: 2011Q1

REPORT INFORMATION
  Report Type: 
  Country: None (occurrence: None)
  Receive Date: 20110204
  Receipt Date: 20110128
  Transmission Date: 20110831
  Serious: Yes (Death)
  Sender: FDA-Public Use
  Company Number: B0697999A

PATIENT
  Sex: Male

DRUGS (1)
  1. ALKERAN [Suspect]
     Indication: MULTIPLE MYELOMA
     Dosage: 800Z PER DAY
     Route: 042
     Dates: start: 20101221, end: 20101221

REACTIONS (1)
  - MULTIPLE MYELOMA [None]
